FAERS Safety Report 26050439 (Version 1)
Quarter: 2025Q4

REPORT INFORMATION
  Report Type: Spontaneous
  Country: AU (occurrence: AU)
  Receive Date: 20251116
  Receipt Date: 20251116
  Transmission Date: 20260117
  Serious: Yes (Hospitalization, Other)
  Sender: CIPLA
  Company Number: AU-CIPLA (EU) LIMITED-2025AU14454

PATIENT

DRUGS (27)
  1. AZACITIDINE [Suspect]
     Active Substance: AZACITIDINE
     Indication: Myelodysplastic syndrome
     Dosage: 175 MILLIGRAM, QD (POWDER FOR SUSPENSION FOR INJECTION)
     Route: 042
     Dates: start: 20231127
  2. AZACITIDINE [Suspect]
     Active Substance: AZACITIDINE
     Dosage: 175 MILLIGRAM, QD (POWDER FOR SUSPENSION FOR INJECTION)
     Route: 042
     Dates: start: 20231130
  3. AZACITIDINE [Suspect]
     Active Substance: AZACITIDINE
     Dosage: 175 MILLIGRAM, QD (POWDER FOR SUSPENSION FOR INJECTION)
     Route: 042
     Dates: start: 20231201
  4. SONROTOCLAX [Suspect]
     Active Substance: SONROTOCLAX
     Indication: Myelodysplastic syndrome
     Dosage: 20 MILLIGRAM, QD
     Route: 048
     Dates: start: 20231127
  5. SONROTOCLAX [Suspect]
     Active Substance: SONROTOCLAX
     Dosage: 160 MILLIGRAM, QD
     Route: 048
     Dates: start: 20231130
  6. AMOXICILLIN\CLAVULANATE POTASSIUM [Concomitant]
     Active Substance: AMOXICILLIN\CLAVULANATE POTASSIUM
     Indication: Bacteraemia
     Dosage: UNK
     Route: 048
     Dates: start: 20231115, end: 20231117
  7. DOCUSATE SODIUM\SENNOSIDE B [Concomitant]
     Active Substance: DOCUSATE SODIUM\SENNOSIDE B
     Indication: Constipation
     Dosage: UNK
     Route: 048
     Dates: start: 20231115
  8. MOVICOL [Concomitant]
     Active Substance: POLYETHYLENE GLYCOL 3350\POTASSIUM CHLORIDE\SODIUM BICARBONATE\SODIUM CHLORIDE
     Indication: Constipation
     Dosage: UNK
     Route: 048
     Dates: start: 20231114
  9. ALLOPURINOL [Concomitant]
     Active Substance: ALLOPURINOL
     Indication: Product used for unknown indication
     Dosage: UNK
     Route: 048
     Dates: start: 2023, end: 20231110
  10. ALLOPURINOL [Concomitant]
     Active Substance: ALLOPURINOL
     Dosage: UNK
     Route: 048
     Dates: start: 20231110, end: 20240214
  11. AZITHROMYCIN [Concomitant]
     Active Substance: AZITHROMYCIN
     Indication: Bacteraemia
     Dosage: UNK
     Route: 048
     Dates: start: 20231113, end: 20231115
  12. CEFTRIAXONE [Concomitant]
     Active Substance: CEFTRIAXONE
     Indication: Bacteraemia
     Dosage: UNK
     Route: 048
     Dates: start: 20231113, end: 20231115
  13. CHOLECALCIFEROL [Concomitant]
     Active Substance: CHOLECALCIFEROL
     Indication: Vitamin supplementation
     Dosage: UNK
     Route: 042
     Dates: start: 20231113, end: 20240207
  14. FLUDROCORTISONE [Concomitant]
     Active Substance: FLUDROCORTISONE
     Indication: Adrenal insufficiency
     Dosage: UNK
     Route: 048
     Dates: start: 202303
  15. HYDROCORTISONE [Concomitant]
     Active Substance: HYDROCORTISONE
     Indication: Adrenal insufficiency
     Dosage: UNK
     Route: 048
     Dates: start: 202303, end: 20231121
  16. HYDROCORTISONE [Concomitant]
     Active Substance: HYDROCORTISONE
     Dosage: UNK
     Route: 048
     Dates: start: 20231121, end: 20231126
  17. HYDROCORTISONE [Concomitant]
     Active Substance: HYDROCORTISONE
     Dosage: UNK
     Route: 048
     Dates: start: 20231126, end: 20231202
  18. LACTULOSE [Concomitant]
     Active Substance: LACTULOSE
     Indication: Constipation
     Dosage: UNK
     Route: 048
     Dates: start: 20231118, end: 20241204
  19. METOPROLOL [Concomitant]
     Active Substance: METOPROLOL
     Indication: Atrial fibrillation
     Dosage: UNK
     Route: 048
     Dates: start: 20231121
  20. OXYCODONE [Concomitant]
     Active Substance: OXYCODONE
     Indication: Bone pain
     Dosage: UNK
     Route: 048
     Dates: start: 20231115
  21. TEICOPLANIN [Concomitant]
     Active Substance: TEICOPLANIN
     Indication: Bacteraemia
     Dosage: UNK
     Route: 042
     Dates: start: 20231118, end: 20231125
  22. TEMAZEPAM [Concomitant]
     Active Substance: TEMAZEPAM
     Indication: Insomnia
     Dosage: UNK
     Route: 048
     Dates: start: 202310
  23. PIPERACILLIN AND TAZOBACTAM [Concomitant]
     Active Substance: PIPERACILLIN SODIUM\TAZOBACTAM SODIUM
     Indication: Cellulitis
     Dosage: UNK
     Route: 065
  24. PIPERACILLIN AND TAZOBACTAM [Concomitant]
     Active Substance: PIPERACILLIN SODIUM\TAZOBACTAM SODIUM
     Indication: Skin infection
     Dosage: UNK
     Route: 042
     Dates: start: 20231103, end: 20231210
  25. VALACYCLOVIR HYDROCHLORIDE [Concomitant]
     Active Substance: VALACYCLOVIR HYDROCHLORIDE
     Indication: Antiviral prophylaxis
     Dosage: UNK
     Route: 048
     Dates: start: 202307
  26. SULFAMETHOXAZOLE\TRIMETHOPRIM [Concomitant]
     Active Substance: SULFAMETHOXAZOLE\TRIMETHOPRIM
     Indication: Pneumocystis jirovecii pneumonia
     Dosage: UNK
     Route: 048
     Dates: start: 202307
  27. PANTOPRAZOLE [Concomitant]
     Active Substance: PANTOPRAZOLE
     Indication: Gastrointestinal disorder prophylaxis
     Dosage: UNK
     Route: 048
     Dates: start: 2023

REACTIONS (3)
  - Pseudomonal sepsis [Recovered/Resolved]
  - Pyrexia [Recovered/Resolved]
  - Skin lesion [Recovered/Resolved]

NARRATIVE: CASE EVENT DATE: 20231201
